FAERS Safety Report 7375035-X (Version None)
Quarter: 2011Q1

REPORT INFORMATION
  Report Type: 
  Country: None (occurrence: None)
  Receive Date: 20110325
  Receipt Date: 20110322
  Transmission Date: 20110831
  Serious: Yes (Life-Threatening, Hospitalization)
  Sender: FDA-Public Use
  Company Number: PHHY2010JP75049

PATIENT
  Sex: Male
  Weight: 62 kg

DRUGS (10)
  1. AFINITOR [Suspect]
     Indication: METASTATIC RENAL CELL CARCINOMA
     Dosage: 10 MG, DAILY
     Route: 048
     Dates: start: 20101020, end: 20101102
  2. ASPIRIN [Concomitant]
     Indication: METASTATIC RENAL CELL CARCINOMA
     Dosage: 100 MG, UNK
     Route: 048
     Dates: start: 20101020
  3. SORAFENIB TOSILATE [Concomitant]
     Dosage: 400 MG, UNK
     Route: 048
     Dates: end: 20101019
  4. LIVALO KOWA [Concomitant]
     Indication: METASTATIC RENAL CELL CARCINOMA
     Dosage: 1 MG, UNK
     Route: 048
     Dates: start: 20101020
  5. SORAFENIB TOSILATE [Concomitant]
     Indication: METASTATIC RENAL CELL CARCINOMA
     Dosage: 800 MG, UNK
     Route: 048
     Dates: start: 20090306
  6. SORAFENIB TOSILATE [Concomitant]
     Dosage: 400 MG, UNK
     Route: 048
  7. VASOLATOR [Concomitant]
     Indication: METASTATIC RENAL CELL CARCINOMA
     Dosage: 27 MG, UNK
     Route: 062
     Dates: start: 20101020
  8. PARIET [Concomitant]
     Indication: METASTATIC RENAL CELL CARCINOMA
     Dosage: 10 MG, UNK
     Route: 048
     Dates: start: 20101020
  9. COROHERSER [Concomitant]
     Indication: METASTATIC RENAL CELL CARCINOMA
     Dosage: 100 MG, UNK
     Route: 048
     Dates: start: 20101020
  10. NIKORANMART [Concomitant]
     Indication: METASTATIC RENAL CELL CARCINOMA
     Dosage: 5 MG, UNK
     Route: 048
     Dates: start: 20101020

REACTIONS (5)
  - INTERSTITIAL LUNG DISEASE [None]
  - PYREXIA [None]
  - GASTROINTESTINAL FISTULA [None]
  - COUGH [None]
  - NEOPLASM MALIGNANT [None]
